FAERS Safety Report 13506030 (Version 1)
Quarter: 2017Q2

REPORT INFORMATION
  Report Type: Spontaneous
  Country: US (occurrence: US)
  Receive Date: 20170502
  Receipt Date: 20170502
  Transmission Date: 20170830
  Serious: No
  Sender: FDA-Public Use
  Company Number: US-ROCHE-1480851

PATIENT
  Sex: Female

DRUGS (3)
  1. TAXOL [Concomitant]
     Active Substance: PACLITAXEL
  2. AVASTIN [Suspect]
     Active Substance: BEVACIZUMAB
     Indication: PRODUCT USED FOR UNKNOWN INDICATION
     Route: 065
  3. TOPOTECAN [Concomitant]
     Active Substance: TOPOTECAN HYDROCHLORIDE

REACTIONS (4)
  - Epistaxis [Unknown]
  - Gingival bleeding [Unknown]
  - Sinus disorder [Unknown]
  - Nail ridging [Unknown]
